FAERS Safety Report 14733988 (Version 6)
Quarter: 2019Q1

REPORT INFORMATION
  Report Type: Spontaneous
  Country: DK (occurrence: DK)
  Receive Date: 20180409
  Receipt Date: 20190214
  Transmission Date: 20190417
  Serious: Yes (Life-Threatening, Hospitalization, Other)
  Sender: FDA-Public Use
  Company Number: DK-CELGENEUS-DNK-20171211041

PATIENT
  Age: 83 Year
  Sex: Male
  Weight: 76 kg

DRUGS (44)
  1. ZONOCT [Concomitant]
     Active Substance: ZOLPIDEM TARTRATE
     Indication: PROPHYLAXIS
     Route: 048
     Dates: start: 20161212
  2. LATANOPROST. [Concomitant]
     Active Substance: LATANOPROST
     Indication: PROPHYLAXIS
     Dosage: 50 MICROGRAM
     Route: 047
     Dates: start: 20170522
  3. OXYCODONE HYDROCHLORIDE. [Concomitant]
     Active Substance: OXYCODONE HYDROCHLORIDE
     Indication: BACK PAIN
     Route: 048
     Dates: start: 20160507
  4. METOPROLOL TARTRATE. [Concomitant]
     Active Substance: METOPROLOL TARTRATE
     Indication: TREMOR
     Dosage: 50 MILLIGRAM
     Route: 048
     Dates: start: 20151125
  5. DEXAMETHASONE. [Suspect]
     Active Substance: DEXAMETHASONE
     Indication: PLASMA CELL MYELOMA
     Dosage: 20 MILLIGRAM
     Route: 048
     Dates: start: 20160517, end: 20171212
  6. ZONOCT [Concomitant]
     Active Substance: ZOLPIDEM TARTRATE
     Indication: INSOMNIA
  7. TAVEGYL [Concomitant]
     Active Substance: CLEMASTINE FUMARATE
     Indication: MULTIPLE ALLERGIES
  8. PARACETAMOL [Concomitant]
     Active Substance: ACETAMINOPHEN
     Indication: ATRIAL FIBRILLATION
     Dosage: 20 MILLIGRAM
     Route: 048
     Dates: start: 20160504
  9. PROPAL [Concomitant]
     Indication: TREMOR
     Dosage: 80 MILLIGRAM
     Route: 065
     Dates: start: 20171219, end: 20171221
  10. MOMETASONE FUROATE. [Concomitant]
     Active Substance: MOMETASONE FUROATE
     Indication: SKIN DISORDER
     Route: 065
  11. FUROSEMIDE. [Concomitant]
     Active Substance: FUROSEMIDE
     Indication: DIURETIC THERAPY
     Dosage: 100 MILLIGRAM
     Route: 041
     Dates: start: 20180117
  12. DARATUMUMAB [Concomitant]
     Active Substance: DARATUMUMAB
     Dosage: 1152 MILLIGRAM
     Route: 041
     Dates: start: 20160711, end: 20161017
  13. DARATUMUMAB [Concomitant]
     Active Substance: DARATUMUMAB
     Dosage: 1152 MILLIGRAM
     Route: 041
     Dates: start: 20161031, end: 20180103
  14. XARELTO [Concomitant]
     Active Substance: RIVAROXABAN
     Indication: ATRIAL FIBRILLATION
     Dosage: 20 MILLIGRAM
     Route: 048
     Dates: start: 20160504
  15. DIGOXIN. [Concomitant]
     Active Substance: DIGOXIN
     Dosage: 62.5 MILLIGRAM
     Route: 048
     Dates: start: 20171221
  16. REVLIMID [Suspect]
     Active Substance: LENALIDOMIDE
     Indication: PLASMA CELL MYELOMA
     Dosage: 10 MILLIGRAM
     Route: 048
     Dates: start: 20160517, end: 20171211
  17. CORDARONE [Suspect]
     Active Substance: AMIODARONE HYDROCHLORIDE
     Indication: TACHYCARDIA
     Route: 065
  18. DARATUMUMAB [Concomitant]
     Active Substance: DARATUMUMAB
     Dosage: 1152 MILLIGRAM
     Route: 041
     Dates: start: 20180103
  19. DIGOXIN. [Concomitant]
     Active Substance: DIGOXIN
     Indication: ATRIAL FLUTTER
     Route: 065
     Dates: start: 20171220
  20. PIPERACILLIN /TAZOBAC [Concomitant]
     Indication: INFECTION PROPHYLAXIS
     Route: 065
     Dates: start: 20180119
  21. REVLIMID [Suspect]
     Active Substance: LENALIDOMIDE
     Route: 048
     Dates: start: 20171019, end: 20180102
  22. DARATUMUMAB [Concomitant]
     Active Substance: DARATUMUMAB
     Dosage: 1152 MILLIGRAM
     Route: 041
     Dates: start: 20160517, end: 20171219
  23. UNIKALK BASIC [Concomitant]
     Indication: PROPHYLAXIS
     Route: 048
     Dates: start: 20160606
  24. TAVEGYL [Concomitant]
     Active Substance: CLEMASTINE FUMARATE
     Indication: RASH
     Dosage: 1MILLIGRAM
     Route: 048
     Dates: start: 20171219
  25. MYCOSTATIN [Concomitant]
     Active Substance: NYSTATIN
     Indication: ANTIFUNGAL PROPHYLAXIS
     Route: 065
     Dates: start: 20180119
  26. BETNOVATE [Concomitant]
     Active Substance: BETAMETHASONE
     Indication: SKIN DISORDER
     Route: 065
     Dates: start: 20180119
  27. REVLIMID [Suspect]
     Active Substance: LENALIDOMIDE
     Dosage: 10 MILLIGRAM
     Route: 048
     Dates: start: 20180102, end: 20180109
  28. MOVICOL [Concomitant]
     Active Substance: POLYETHYLENE GLYCOL 3350\POTASSIUM CHLORIDE\SODIUM BICARBONATE\SODIUM CHLORIDE
     Route: 048
     Dates: start: 20170331
  29. LAXOBEROL [Concomitant]
     Indication: CONSTIPATION PROPHYLAXIS
     Route: 065
     Dates: start: 20180118
  30. STESOLID [Concomitant]
     Active Substance: DIAZEPAM
     Indication: ANXIETY
     Route: 065
     Dates: start: 20180120
  31. B1 VITAMIN [Concomitant]
     Indication: HYPOVITAMINOSIS
     Route: 065
     Dates: start: 20180121
  32. OXYCODONE HYDROCHLORIDE. [Concomitant]
     Active Substance: OXYCODONE HYDROCHLORIDE
     Dosage: 5 MILLIGRAM
     Route: 048
     Dates: start: 20171122
  33. PARACETAMOL [Concomitant]
     Active Substance: ACETAMINOPHEN
     Indication: PAIN
  34. MOVICOL [Concomitant]
     Active Substance: POLYETHYLENE GLYCOL 3350\POTASSIUM CHLORIDE\SODIUM BICARBONATE\SODIUM CHLORIDE
     Indication: CONSTIPATION PROPHYLAXIS
     Dosage: 1 DOSAGE FORMS
     Route: 048
     Dates: start: 20161121
  35. FRAGMIN [Concomitant]
     Active Substance: DALTEPARIN SODIUM
     Indication: THROMBOSIS PROPHYLAXIS
     Route: 065
     Dates: start: 20180116
  36. DEXAMETHASONE. [Suspect]
     Active Substance: DEXAMETHASONE
     Dosage: 20 MILLIGRAM
     Route: 048
     Dates: start: 20180103, end: 20180103
  37. DARATUMUMAB [Concomitant]
     Active Substance: DARATUMUMAB
     Indication: PLASMA CELL MYELOMA
     Dosage: 1152 MILLIGRAM
     Route: 041
     Dates: start: 20160517, end: 20160704
  38. CODEIN [Concomitant]
     Active Substance: CODEINE
     Indication: BACK PAIN
     Route: 048
     Dates: start: 20171012
  39. OMNIC [Concomitant]
     Active Substance: TAMSULOSIN HYDROCHLORIDE
     Indication: BENIGN PROSTATIC HYPERPLASIA
     Dosage: .4 MILLIGRAM
     Route: 048
  40. OXYCODONE HYDROCHLORIDE. [Concomitant]
     Active Substance: OXYCODONE HYDROCHLORIDE
     Indication: PAIN PROPHYLAXIS
     Route: 065
     Dates: start: 20180119
  41. PARACETAMOL [Concomitant]
     Active Substance: ACETAMINOPHEN
     Indication: BACK PAIN
     Route: 048
     Dates: start: 20160411
  42. DIGOXIN. [Concomitant]
     Active Substance: DIGOXIN
     Dosage: 187.5 MICROGRAM
     Route: 065
     Dates: start: 20180123
  43. IMMUNOGLOBULIN HUMAN [Concomitant]
     Active Substance: HUMAN IMMUNOGLOBULIN G
     Indication: IMMUNODEFICIENCY
     Route: 065
  44. HYDROCORTISONE BUTYRATE. [Concomitant]
     Active Substance: HYDROCORTISONE BUTYRATE
     Indication: SKIN DISORDER
     Route: 065

REACTIONS (3)
  - Ventricular tachycardia [Recovered/Resolved with Sequelae]
  - Pulmonary embolism [Recovered/Resolved]
  - Cardiac arrest [Recovered/Resolved]

NARRATIVE: CASE EVENT DATE: 20171219
